FAERS Safety Report 17936244 (Version 1)
Quarter: 2020Q2

REPORT INFORMATION
  Report Type: Spontaneous
  Country: US (occurrence: US)
  Receive Date: 20200624
  Receipt Date: 20200624
  Transmission Date: 20200714
  Serious: No
  Sender: FDA-Public Use
  Company Number: None

PATIENT
  Age: 48 Year
  Sex: Male
  Weight: 108.9 kg

DRUGS (16)
  1. REMDESIVIR. [Suspect]
     Active Substance: REMDESIVIR
     Indication: SARS-COV-2 TEST POSITIVE
     Dosage: ?          OTHER FREQUENCY:ONCE;?
     Route: 042
     Dates: start: 20200611, end: 20200611
  2. INSULIN [Concomitant]
     Active Substance: INSULIN NOS
     Dates: start: 20200610, end: 20200624
  3. FUROSEMIDE. [Concomitant]
     Active Substance: FUROSEMIDE
     Dates: start: 20200611, end: 20200611
  4. NOREPINEPHRINE. [Concomitant]
     Active Substance: NOREPINEPHRINE
     Dates: start: 20200610, end: 20200611
  5. ROCURONIUM [Concomitant]
     Active Substance: ROCURONIUM BROMIDE
     Dates: start: 20200610, end: 20200614
  6. CALCIUM GLUCONATE. [Concomitant]
     Active Substance: CALCIUM GLUCONATE
     Dates: start: 20200611, end: 20200611
  7. METOPROLOL. [Concomitant]
     Active Substance: METOPROLOL
     Dates: start: 20200610, end: 20200610
  8. FENTANYL. [Concomitant]
     Active Substance: FENTANYL
     Dates: start: 20200610, end: 20200624
  9. CHLORHEXIDINE TOPICAL [Concomitant]
     Dates: start: 20200610, end: 20200624
  10. DEXTROSE D50W [Concomitant]
     Dates: start: 20200611, end: 20200611
  11. PROPOFOL. [Concomitant]
     Active Substance: PROPOFOL
     Dates: start: 20200610, end: 20200614
  12. FAMOTIDINE. [Concomitant]
     Active Substance: FAMOTIDINE
     Dates: start: 20200610, end: 20200624
  13. REMDESIVIR. [Suspect]
     Active Substance: REMDESIVIR
     Indication: SARS-COV-2 TEST POSITIVE
     Route: 042
     Dates: start: 20200612, end: 20200615
  14. OCULAR LUBRICANT (ARTIFICIAL TEARS) [Concomitant]
     Dates: start: 20200610, end: 20200617
  15. HEPARIN [Concomitant]
     Active Substance: HEPARIN SODIUM
     Dates: start: 20200610, end: 20200624
  16. VELETRI [Concomitant]
     Active Substance: EPOPROSTENOL
     Dates: start: 20200614, end: 20200619

REACTIONS (1)
  - Blood bilirubin increased [None]

NARRATIVE: CASE EVENT DATE: 20200612
